FAERS Safety Report 6151313-7 (Version None)
Quarter: 2009Q2

REPORT INFORMATION
  Report Type: 
  Country: None (occurrence: None)
  Receive Date: 20090408
  Receipt Date: 20090331
  Transmission Date: 20091009
  Serious: Yes (Death, Life-Threatening, Hospitalization, Other)
  Sender: FDA-Public Use
  Company Number: 2009SP001524

PATIENT
  Age: 78 Year
  Sex: Male
  Weight: 50 kg

DRUGS (12)
  1. PEG-INTRON [Suspect]
     Indication: HEPATITIS C
     Dosage: 50 MCG; QW; SC, 50 MCG; QOW; SC
     Route: 058
     Dates: start: 20080218, end: 20081101
  2. PEG-INTRON [Suspect]
     Indication: HEPATITIS C
     Dosage: 50 MCG; QW; SC, 50 MCG; QOW; SC
     Route: 058
     Dates: start: 20081102, end: 20090106
  3. REBETOL [Suspect]
     Indication: HEPATITIS C
     Dosage: 200 MG; QD; PO
     Route: 048
     Dates: start: 20080218, end: 20081102
  4. REBETOL [Suspect]
     Indication: HEPATITIS C
     Dosage: 200 MG; QD; PO
     Route: 048
     Dates: end: 20090106
  5. PLACENTA EXTRACT (PLACENTA EXTRACT) [Suspect]
     Indication: DRUG USE FOR UNKNOWN INDICATION
     Dosage: ; PO
     Route: 048
  6. URSO 250 [Concomitant]
  7. PANTOSIN [Concomitant]
  8. EPADEL [Concomitant]
  9. LOXONIN [Concomitant]
  10. MUCOSTA [Concomitant]
  11. JUZEN-TAIHO-TO [Concomitant]
  12. FLIVAS [Concomitant]

REACTIONS (9)
  - ACUTE RESPIRATORY DISTRESS SYNDROME [None]
  - ANAEMIA [None]
  - BLOOD PRESSURE DIASTOLIC DECREASED [None]
  - CARDIAC FAILURE [None]
  - CHEST PAIN [None]
  - DYSPNOEA EXERTIONAL [None]
  - INTERSTITIAL LUNG DISEASE [None]
  - PLEURAL EFFUSION [None]
  - PNEUMONIA [None]
